FAERS Safety Report 16890380 (Version 1)
Quarter: 2019Q4

REPORT INFORMATION
  Report Type: Spontaneous
  Country: PT (occurrence: PT)
  Receive Date: 20191007
  Receipt Date: 20191007
  Transmission Date: 20200122
  Serious: Yes (Other)
  Sender: FDA-Public Use
  Company Number: PT-MYLANLABS-2019M1090471

PATIENT

DRUGS (1)
  1. GEMCITABINE. [Suspect]
     Active Substance: GEMCITABINE
     Indication: BLADDER NEOPLASM
     Dosage: 2 G/ 50 ML NACL ADMINISTERED FOR 6 WEEKS

REACTIONS (1)
  - Bladder cancer recurrent [Unknown]
